FAERS Safety Report 8431647-3 (Version None)
Quarter: 2012Q2

REPORT INFORMATION
  Report Type: 
  Country: None (occurrence: None)
  Receive Date: 20120613
  Receipt Date: 20111223
  Transmission Date: 20120825
  Serious: No
  Sender: FDA-Public Use
  Company Number: US-GLAXOSMITHKLINE-A0959226A

PATIENT
  Sex: Female

DRUGS (12)
  1. TREXIMET [Suspect]
     Indication: MIGRAINE
     Dosage: 1TAB AS REQUIRED
     Route: 048
     Dates: start: 20090101
  2. OMEPRAZOLE [Concomitant]
  3. KLONOPIN [Concomitant]
  4. ALBUTEROL [Concomitant]
  5. VICODIN [Concomitant]
  6. ESTRADIOL [Concomitant]
  7. AVONEX [Concomitant]
  8. DEXTROMETHORPHAN HYDROBROMIDE [Concomitant]
  9. NAMENDA [Concomitant]
  10. ZYPREXA [Concomitant]
  11. LEVOTHYROXINE SODIUM [Concomitant]
  12. PAROXETINE [Concomitant]

REACTIONS (1)
  - FEELING COLD [None]
